FAERS Safety Report 6654404-7 (Version None)
Quarter: 2010Q1

REPORT INFORMATION
  Report Type: 
  Country: None (occurrence: None)
  Receive Date: 20100326
  Receipt Date: 20100317
  Transmission Date: 20100710
  Serious: Yes (Hospitalization)
  Sender: FDA-Public Use
  Company Number: GB-PFIZER INC-2010034149

PATIENT
  Age: 41 Year
  Sex: Male

DRUGS (14)
  1. MARAVIROC [Suspect]
     Indication: HIV INFECTION
     Dosage: 200 MG, 2X/DAY
     Dates: start: 20071215, end: 20080108
  2. MARAVIROC [Suspect]
     Dosage: 150 MG, 2X/DAY
     Dates: start: 20080215
  3. CYCLOPHOSPHAMIDE [Suspect]
     Indication: HIV INFECTION
     Dosage: UNK
     Dates: start: 20071216, end: 20080104
  4. DARUNAVIR [Suspect]
     Indication: HIV INFECTION
     Dosage: 600 MG, 2X/DAY
     Dates: start: 20071215, end: 20080104
  5. LAMIVUDINE [Suspect]
     Indication: HIV INFECTION
     Dosage: UNK
     Dates: start: 19970207
  6. LAMIVUDINE [Suspect]
     Dosage: UNK
     Dates: start: 20080215
  7. RALTEGRAVIR POTASSIUM [Suspect]
     Indication: HIV INFECTION
     Dosage: 400 MG, UNK
     Route: 048
     Dates: start: 20071216, end: 20080108
  8. RITONAVIR [Suspect]
     Dosage: UNK
     Dates: start: 19970204, end: 20080104
  9. ACETYLSALICYLIC ACID [Concomitant]
  10. ATORVASTATIN CALCIUM [Concomitant]
  11. LOVAZA [Concomitant]
  12. SEPTRIN [Concomitant]
     Dosage: UNK
     Dates: start: 19960101, end: 20080104
  13. SEPTRIN [Concomitant]
     Dosage: UNK
     Dates: start: 20080104
  14. TIPRANAVIR [Concomitant]
     Dosage: UNK
     Dates: start: 20080215

REACTIONS (5)
  - ABDOMINAL DISTENSION [None]
  - NAUSEA [None]
  - STEVENS-JOHNSON SYNDROME [None]
  - VIRAL LOAD INCREASED [None]
  - WEIGHT DECREASED [None]
